FAERS Safety Report 14944356 (Version 2)
Quarter: 2018Q2

REPORT INFORMATION
  Report Type: Report from Study
  Country: US (occurrence: US)
  Receive Date: 20180528
  Receipt Date: 20180529
  Transmission Date: 20180711
  Serious: Yes (Other)
  Sender: FDA-Public Use
  Company Number: US-BEH-2018090896

PATIENT
  Age: 37 Year
  Sex: Female
  Weight: 56.69 kg

DRUGS (1)
  1. HIZENTRA [Suspect]
     Active Substance: HUMAN IMMUNOGLOBULIN G
     Indication: PRIMARY IMMUNODEFICIENCY SYNDROME
     Dosage: 12 G, QW
     Route: 058
     Dates: start: 20180515

REACTIONS (6)
  - Aphasia [Recovered/Resolved]
  - Disturbance in attention [Recovered/Resolved]
  - Feeling abnormal [Recovered/Resolved]
  - Confusional state [Recovered/Resolved]
  - Memory impairment [Recovered/Resolved]
  - Mental fatigue [Recovered/Resolved]

NARRATIVE: CASE EVENT DATE: 20180516
